FAERS Safety Report 26200226 (Version 1)
Quarter: 2025Q4

REPORT INFORMATION
  Report Type: Spontaneous
  Country: CN (occurrence: CN)
  Receive Date: 20251225
  Receipt Date: 20251225
  Transmission Date: 20260117
  Serious: Yes (Hospitalization, Other)
  Sender: AMGEN
  Company Number: CN-AMGEN-CHNSP2025250536

PATIENT
  Age: 61 Year
  Sex: Male

DRUGS (2)
  1. XGEVA [Suspect]
     Active Substance: DENOSUMAB
     Indication: Metastases to bone
     Dosage: 120 MILLIGRAM, Q4WK FOR 2 YEARS
     Route: 058
     Dates: start: 202108
  2. AXITINIB [Concomitant]
     Active Substance: AXITINIB
     Indication: Clear cell renal cell carcinoma
     Dosage: 10 MILLIGRAM, BID
     Route: 048
     Dates: start: 202108

REACTIONS (3)
  - Osteomyelitis [Unknown]
  - Osteonecrosis of jaw [Unknown]
  - Clear cell renal cell carcinoma [Unknown]

NARRATIVE: CASE EVENT DATE: 20230801
